FAERS Safety Report 4954750-9 (Version None)
Quarter: 2006Q1

REPORT INFORMATION
  Report Type: 
  Country: None (occurrence: None)
  Receive Date: 20060322
  Receipt Date: 20060308
  Transmission Date: 20060701
  Serious: Yes (Hospitalization)
  Sender: FDA-Public Use
  Company Number: 2006012969

PATIENT
  Age: 68 Year
  Sex: Female
  Weight: 69.2 kg

DRUGS (7)
  1. SUTENT [Suspect]
     Indication: METASTATIC RENAL CELL CARCINOMA
     Dosage: 50 MG (50 MG, 1 IN 1 D), ORAL
     Route: 048
     Dates: start: 20051229, end: 20060111
  2. PREDNISONE [Concomitant]
  3. METFORMIN [Concomitant]
  4. FLORINEF [Concomitant]
  5. ADALAT [Concomitant]
  6. LEVOTHYROXINE SODIUM [Concomitant]
  7. LORAZEPAM [Concomitant]

REACTIONS (7)
  - ADRENOCORTICAL INSUFFICIENCY ACUTE [None]
  - DEHYDRATION [None]
  - DEPRESSED LEVEL OF CONSCIOUSNESS [None]
  - HYPOKALAEMIA [None]
  - INFECTION [None]
  - INFLUENZA [None]
  - STRESS [None]
